FAERS Safety Report 10135997 (Version 3)
Quarter: 2014Q2

REPORT INFORMATION
  Report Type: Spontaneous
  Country: US (occurrence: US)
  Receive Date: 20140429
  Receipt Date: 20140604
  Transmission Date: 20141212
  Serious: Yes (Death, Other)
  Sender: FDA-Public Use
  Company Number: US-ROCHE-1388527

PATIENT
  Age: 33 Year
  Sex: Female

DRUGS (2)
  1. LUCENTIS [Suspect]
     Indication: RETINAL DETACHMENT
     Route: 065
  2. LUCENTIS [Suspect]
     Indication: RETINAL HAEMORRHAGE

REACTIONS (5)
  - Renal failure chronic [Fatal]
  - Diabetic end stage renal disease [Fatal]
  - Blindness unilateral [Unknown]
  - Drug intolerance [Unknown]
  - Retinal disorder [Unknown]
